FAERS Safety Report 14091366 (Version 1)
Quarter: 2017Q4

REPORT INFORMATION
  Report Type: Spontaneous
  Country: US (occurrence: US)
  Receive Date: 20171016
  Receipt Date: 20171016
  Transmission Date: 20180321
  Serious: No
  Sender: FDA-Public Use
  Company Number: US-ASTRAZENECA-2017SF03801

PATIENT
  Age: 0 Year
  Sex: Male
  Weight: 7.2 kg

DRUGS (5)
  1. SYNAGIS [Suspect]
     Active Substance: PALIVIZUMAB
     Indication: CONGENITAL ANOMALY
     Route: 030
     Dates: start: 2016, end: 2016
  2. SYNAGIS [Suspect]
     Active Substance: PALIVIZUMAB
     Indication: NEONATAL RESPIRATORY DISTRESS SYNDROME
     Route: 030
  3. SYNAGIS [Suspect]
     Active Substance: PALIVIZUMAB
     Indication: CONGENITAL ANOMALY
     Route: 030
  4. BENADRYL [Concomitant]
     Active Substance: DIPHENHYDRAMINE HYDROCHLORIDE
     Route: 065
     Dates: start: 2016
  5. SYNAGIS [Suspect]
     Active Substance: PALIVIZUMAB
     Indication: NEONATAL RESPIRATORY DISTRESS SYNDROME
     Route: 030
     Dates: start: 2016, end: 2016

REACTIONS (3)
  - Off label use [Unknown]
  - Atrial septal defect [Unknown]
  - Cardiac murmur [Unknown]

NARRATIVE: CASE EVENT DATE: 2016
